FAERS Safety Report 5563966-2 (Version None)
Quarter: 2007Q4

REPORT INFORMATION
  Report Type: 
  Country: None (occurrence: None)
  Receive Date: 20071217
  Receipt Date: 20071207
  Transmission Date: 20080405
  Serious: Yes (Other)
  Sender: FDA-Public Use
  Company Number: HU-ELI_LILLY_AND_COMPANY-HU200712001527

PATIENT
  Age: 64 Year
  Sex: Male

DRUGS (4)
  1. HUMULIN N [Suspect]
     Indication: DIABETES MELLITUS
     Dosage: 20 IU MORN, 15 IU NOON, 19 IU EVENING
     Dates: start: 20010101
  2. HUMULIN R [Suspect]
     Indication: DIABETES MELLITUS
     Dosage: 26 IU, AT NIGHT
     Dates: start: 20010101
  3. MILURIT [Concomitant]
     Indication: HYPERTENSION
     Dosage: UNK UNK, 2/D
     Route: 048
  4. CARVEDILOL [Concomitant]
     Indication: HYPERTENSION
     Dosage: UNK UNK, 2/D
     Route: 048

REACTIONS (5)
  - ARTERIOSCLEROSIS [None]
  - ARTHRITIS [None]
  - BLOOD GLUCOSE INCREASED [None]
  - CYANOSIS [None]
  - PAIN IN EXTREMITY [None]
